FAERS Safety Report 9752314 (Version 1)
Quarter: 2013Q4

REPORT INFORMATION
  Report Type: Spontaneous
  Country: US (occurrence: None)
  Receive Date: 20131212
  Receipt Date: 20131212
  Transmission Date: 20140711
  Serious: Yes (Life-Threatening, Hospitalization)
  Sender: FDA-Public Use
  Company Number: None

PATIENT
  Age: 27 Year
  Sex: Female
  Weight: 81.65 kg

DRUGS (1)
  1. LYRICA LYRICA 75MG [Suspect]
     Indication: NEURALGIA
     Dosage: LYRICA  TWICE DAILY  TAKEN BY MOUTH
     Route: 048
     Dates: start: 20070701, end: 20070920

REACTIONS (1)
  - Suicide attempt [None]
